FAERS Safety Report 15778585 (Version 16)
Quarter: 2023Q4

REPORT INFORMATION
  Report Type: Spontaneous
  Country: US (occurrence: US)
  Receive Date: 20181231
  Receipt Date: 20231016
  Transmission Date: 20240110
  Serious: Yes (Other)
  Sender: FDA-Public Use
  Company Number: US-PFIZER INC-2017392718

PATIENT
  Age: 47 Year
  Sex: Female
  Weight: 75.75 kg

DRUGS (3)
  1. SOMAVERT [Suspect]
     Active Substance: PEGVISOMANT
     Indication: Acromegaly
     Dosage: 20 MG, DAILY (INJECTION NIGHTLY, SHE ALTERNATES BETWEEN HER BELLY AND TOPS OF HER THIGHS)
     Route: 058
  2. SOMAVERT [Suspect]
     Active Substance: PEGVISOMANT
     Indication: Gigantism
     Dosage: 20 MG, ALTERNATE DAY (EVERY OTHER DAY)
  3. SOMAVERT [Suspect]
     Active Substance: PEGVISOMANT
     Indication: Growth hormone-producing pituitary tumour

REACTIONS (7)
  - Injection site indentation [Unknown]
  - Insulin-like growth factor increased [Unknown]
  - Stress [Unknown]
  - Hot flush [Unknown]
  - Weight increased [Unknown]
  - Product dose omission issue [Unknown]
  - Intentional product misuse [Unknown]

NARRATIVE: CASE EVENT DATE: 20080101
